FAERS Safety Report 18020706 (Version 2)
Quarter: 2020Q4

REPORT INFORMATION
  Report Type: Spontaneous
  Country: JP (occurrence: JP)
  Receive Date: 20200714
  Receipt Date: 20201218
  Transmission Date: 20210113
  Serious: Yes (Death, Hospitalization, Other)
  Sender: FDA-Public Use
  Company Number: JP-009507513-2007JPN000650J

PATIENT
  Age: 58 Year
  Sex: Male
  Weight: 71 kg

DRUGS (15)
  1. TRANSAMIN [Concomitant]
     Active Substance: TRANEXAMIC ACID
     Dosage: UNK
     Route: 048
     Dates: end: 20200501
  2. PEMETREXED DISODIUM [Concomitant]
     Active Substance: PEMETREXED DISODIUM
     Indication: NON-SMALL CELL LUNG CANCER
     Dosage: UNK
     Route: 065
     Dates: start: 20190906, end: 20200220
  3. MAGMITT [Concomitant]
     Active Substance: MAGNESIUM OXIDE
     Dosage: UNK
     Route: 048
     Dates: end: 20200501
  4. ADONA [Concomitant]
     Dosage: UNK
     Route: 048
     Dates: end: 20200501
  5. SODIUM FERROUS CITRATE [Concomitant]
     Active Substance: SODIUM FERROUS CITRATE
     Dosage: UNK
     Route: 048
     Dates: end: 20200501
  6. GLYCYRON [Concomitant]
     Dosage: UNK
     Route: 048
     Dates: end: 20200501
  7. CALONAL [Concomitant]
     Active Substance: ACETAMINOPHEN
     Dosage: UNK
     Route: 048
     Dates: end: 20200501
  8. AUGMENTIN COMBINATION [Concomitant]
     Active Substance: AMOXICILLIN\CLAVULANATE POTASSIUM
     Dosage: UNK
     Route: 048
  9. URSODEOXYCHOLIC ACID [Concomitant]
     Active Substance: URSODIOL
     Dosage: UNK
     Route: 048
     Dates: end: 20200501
  10. TAKECAB [Concomitant]
     Active Substance: VONOPRAZAN FUMARATE
     Dosage: UNK
     Route: 048
     Dates: end: 20200501
  11. FEXOFENADINE HYDROCHLORIDE. [Concomitant]
     Active Substance: FEXOFENADINE HYDROCHLORIDE
     Dosage: UNK
     Route: 048
     Dates: end: 20200501
  12. CARBOPLATIN. [Concomitant]
     Active Substance: CARBOPLATIN
     Indication: NON-SMALL CELL LUNG CANCER
     Dosage: UNK
     Route: 065
     Dates: start: 20190906, end: 20191203
  13. AMOXICILLIN. [Concomitant]
     Active Substance: AMOXICILLIN
     Dosage: UNK
     Route: 048
     Dates: end: 20200501
  14. ACETAMINOPHEN. [Concomitant]
     Active Substance: ACETAMINOPHEN
     Dosage: 1800 MILLIGRAM/DAY
     Route: 065
  15. KEYTRUDA [Suspect]
     Active Substance: PEMBROLIZUMAB
     Indication: LUNG ADENOCARCINOMA
     Dosage: 200 MILLIGRAM/TIME
     Route: 041
     Dates: start: 20190906, end: 20190906

REACTIONS (2)
  - Immune-mediated myositis [Fatal]
  - Myasthenia gravis [Fatal]

NARRATIVE: CASE EVENT DATE: 20200501
